FAERS Safety Report 10478813 (Version 1)
Quarter: 2014Q3

REPORT INFORMATION
  Report Type: Spontaneous
  Country: US (occurrence: US)
  Receive Date: 20140926
  Receipt Date: 20140926
  Transmission Date: 20150326
  Serious: Yes (Death, Other)
  Sender: FDA-Public Use
  Company Number: US-PFIZER INC-2014260633

PATIENT
  Age: 69 Year
  Sex: Male

DRUGS (2)
  1. SUTENT [Suspect]
     Active Substance: SUNITINIB MALATE
     Indication: RENAL CANCER STAGE IV
     Dosage: 50 MG, ONCE A DAY, 4 WEEKS ON AND 2 WEEKS OFF
     Route: 048
     Dates: start: 20140911
  2. SUTENT [Suspect]
     Active Substance: SUNITINIB MALATE
     Indication: METASTASES TO GASTROINTESTINAL TRACT

REACTIONS (2)
  - Cardio-respiratory arrest [Fatal]
  - Convulsion [Fatal]

NARRATIVE: CASE EVENT DATE: 20140911
